FAERS Safety Report 23910437 (Version 2)
Quarter: 2024Q2

REPORT INFORMATION
  Report Type: Spontaneous
  Country: DK (occurrence: DK)
  Receive Date: 20240528
  Receipt Date: 20240619
  Transmission Date: 20240716
  Serious: Yes (Death, Other)
  Sender: FDA-Public Use
  Company Number: None

PATIENT
  Age: 15 Month
  Sex: Female
  Weight: 11 kg

DRUGS (7)
  1. PROPOFOL [Suspect]
     Active Substance: PROPOFOL
     Indication: Sedation
     Dosage: ON 02MAR2024, THE PATIENT IS SEDATED. A LARGE DOSE (NOT FURHER SPECIFIED) OF PROPOFOL WAS NEEDED. TH
     Route: 042
     Dates: end: 20240304
  2. CEFTRIAXON ^FRESENIUS KABI^ 2 G POWDER FOR SOLUTION FOR INFUSION [Concomitant]
     Indication: Meningitis
     Dosage: DOSE IS GIVEN AT UNKNOWN TIME INTERVAL.?FORM OF ADMIN.- POWDER FOR SOLUTION FOR INFUSION?1.1 GRAMS
     Dates: start: 20240301, end: 20240304
  3. VALPROATE [Concomitant]
     Active Substance: VALPROIC ACID
     Indication: Seizure
     Dosage: DOSAGE INTERVAL IS UNKNOWN. ?START DATE UNKNOWN.
  4. BERODUAL 1.25 + 0.5 MG/BEHOL. NEBULISER SOLUTION, SINGLE-DOSE CONTAINE [Concomitant]
     Indication: Product used for unknown indication
     Dosage: GIVEN AT UNKNOWN TIME INTERVAL.?0.5 DOSAGE FORM
     Dates: start: 20240303, end: 20240303
  5. GADOVIST 1 mmol/ml [Concomitant]
     Indication: Scan with contrast
     Dosage: DOSE IS GIVEN  AT UNKNOWN TIME INTERVAL.?1.1 ML
     Dates: start: 20240302, end: 20240302
  6. STESOLID 5 MG SUPPOSITORY [Concomitant]
     Indication: Seizure
     Dosage: DOSE IS GIVEN IN UNKNOWN TIME INTERVAL.?FORM OF ADMIN.- SUPPOSITORY
     Route: 054
     Dates: start: 20240301, end: 20240301
  7. MIDAZOLAM ^HAMELN^ 1 MG/ML SOLUTION FOR INJECTION/INFUSION [Concomitant]
     Indication: Seizure
     Dosage: FORM OF ADMIN.- SOLUTION FOR INJECTION/INFUSION?2.2 MG
     Dates: start: 20240301, end: 20240301

REACTIONS (12)
  - Multiple organ dysfunction syndrome [Fatal]
  - Propofol infusion syndrome [Fatal]
  - Cardiac arrest [Fatal]
  - Brain injury [Not Recovered/Not Resolved]
  - Renal failure [Unknown]
  - Pericardial effusion [Unknown]
  - Haemodynamic instability [Unknown]
  - Pleural effusion [Unknown]
  - Discomfort [Unknown]
  - Oxygen saturation decreased [Unknown]
  - Respiratory disorder [Not Recovered/Not Resolved]
  - Metabolic acidosis [Unknown]

NARRATIVE: CASE EVENT DATE: 20240301
